FAERS Safety Report 5261818-9 (Version None)
Quarter: 2007Q1

REPORT INFORMATION
  Report Type: 
  Country: None (occurrence: None)
  Receive Date: 20070310
  Receipt Date: 20060602
  Transmission Date: 20070707
  Serious: Yes (Hospitalization)
  Sender: FDA-Public Use
  Company Number: 2006UW10780

PATIENT
  Sex: Male
  Weight: 94.5 kg

DRUGS (6)
  1. SEROQUEL [Suspect]
     Indication: DEPRESSION
     Route: 048
     Dates: start: 20040801, end: 20050801
  2. SEROQUEL [Suspect]
     Indication: SCHIZOPHRENIA
     Route: 048
     Dates: start: 20040801, end: 20050801
  3. SEROQUEL [Suspect]
     Indication: PARANOIA
     Route: 048
     Dates: start: 20040801, end: 20050801
  4. HALDOL [Suspect]
  5. RISPERDAL [Suspect]
  6. ZYPREXA [Suspect]

REACTIONS (2)
  - ASTHMA [None]
  - DIABETES MELLITUS [None]
